FAERS Safety Report 17182308 (Version 1)
Quarter: 2019Q4

REPORT INFORMATION
  Report Type: Spontaneous
  Country: DE (occurrence: DE)
  Receive Date: 20191220
  Receipt Date: 20191220
  Transmission Date: 20200122
  Serious: Yes (Congenital Anomaly, Other)
  Sender: FDA-Public Use
  Company Number: DE-HETERO CORPORATE-HET2018DE00107

PATIENT
  Age: 1 Day
  Sex: Female
  Weight: 3.6 kg

DRUGS (12)
  1. SIMVASTATIN. [Concomitant]
     Active Substance: SIMVASTATIN
     Indication: HYPERCHOLESTEROLAEMIA
     Dosage: EXPOSITION: PATERNAL (FATHERROUTE OF ADMIN. ORAL)  PROBABLY EITHER SIMVASTATIN OR ATOZET
     Route: 064
  2. ATOZET [Concomitant]
     Active Substance: ATORVASTATIN CALCIUM\EZETIMIBE
     Indication: HYPERCHOLESTEROLAEMIA
     Dosage: 40 [MG/D ] / 10 [MG/D (VATER) ]/ PROBABLY EITHER ATOZET OR SIMVASTATIN EXPOSITION: PATERNAL (FATHERR
     Route: 064
     Dates: start: 20160819, end: 20170529
  3. ESCITALOPRAM [Suspect]
     Active Substance: ESCITALOPRAM OXALATE
     Indication: DEPRESSION
     Dosage: 7.5 MG, QD (MUTTER) 0. - 40.3. GESTATIONAL WEEK
     Route: 064
     Dates: start: 20160819, end: 20170529
  4. EBRANTIL [Concomitant]
     Active Substance: URAPIDIL
     Indication: HYPERTENSION
     Dosage: UNK (EXPOSITION: PATERNAL (FATHERROUTE OF ADMIN. ORAL)
     Route: 064
     Dates: start: 20160819, end: 20170529
  5. PARACETAMOL [Concomitant]
     Active Substance: ACETAMINOPHEN
     Indication: MIGRAINE
     Dosage: 0. - 3.6. GESTATIONAL WEEK
     Route: 064
  6. BICANORM [Concomitant]
     Active Substance: SODIUM BICARBONATE
     Indication: GLOMERULONEPHRITIS
     Dosage: UNK EXPOSITION: PATERNAL (FATHERROUTE OF ADMIN. ORAL)
     Route: 064
     Dates: start: 20160819, end: 20170529
  7. ASPIRIN. [Concomitant]
     Active Substance: ASPIRIN
     Indication: HYPERTENSION
     Dosage: 100 MG, QD (VATER) EXPOSITION: PATERNAL (FATHERROUTE OF ADMIN. ORAL)
     Route: 064
     Dates: start: 20160819, end: 20170529
  8. AMLODIPINE                         /00972402/ [Concomitant]
     Active Substance: AMLODIPINE BESYLATE
     Indication: HYPERTENSION
     Dosage: 10 MG, QD (VATER) EXPOSITION: PATERNAL (FATHERROUTE OF ADMIN. ORAL)
     Route: 064
     Dates: start: 20160819, end: 20170529
  9. RAMILICH [Concomitant]
     Active Substance: RAMIPRIL
     Indication: HYPERTENSION
     Dosage: 10 MG, QD EXPOSITION: PATERNAL (FATHERROUTE OF ADMIN. ORAL)
     Route: 064
     Dates: start: 20160819, end: 20170529
  10. FOLSAN [Concomitant]
     Active Substance: FOLIC ACID
     Indication: PROPHYLAXIS OF NEURAL TUBE DEFECT
     Dosage: 0.4 MG, QD (MUTTER) 4.4. - 40.3. GESTATIONAL WEEK
     Route: 064
     Dates: start: 20160920, end: 20170529
  11. VALSARTAN. [Concomitant]
     Active Substance: VALSARTAN
     Indication: HYPERTENSION
     Dosage: 160 MG, QD (VATER) EXPOSITION: PATERNAL (FATHERROUTE OF ADMIN. ORAL)
     Route: 064
     Dates: start: 20160819, end: 20170529
  12. DEKRISTOL [Concomitant]
     Active Substance: CHOLECALCIFEROL
     Indication: PRODUCT USED FOR UNKNOWN INDICATION
     Dosage: [IE/D (ALLE 2 WOCHEN) (VATER) ] 2000 UNK EXPOSITION: PATERNAL (FATHERROUTE OF ADMIN. ORAL)
     Route: 064
     Dates: start: 20160819, end: 20170529

REACTIONS (4)
  - Truncus arteriosus persistent [Recovered/Resolved with Sequelae]
  - Ventricular septal defect [Recovered/Resolved with Sequelae]
  - Foetal exposure during pregnancy [Unknown]
  - Atrial septal defect [Recovered/Resolved]

NARRATIVE: CASE EVENT DATE: 20170529
